FAERS Safety Report 9549481 (Version 2)
Quarter: 2013Q3

REPORT INFORMATION
  Report Type: Spontaneous
  Country: US (occurrence: US)
  Receive Date: 20130924
  Receipt Date: 20130930
  Transmission Date: 20140515
  Serious: No
  Sender: FDA-Public Use
  Company Number: CHPA2013US014674

PATIENT
  Sex: Female

DRUGS (7)
  1. PREVACID 24HR 15MG [Suspect]
     Indication: PROPHYLAXIS
     Dosage: 15 MG, QD
     Route: 048
  2. PREVACID 24HR 15MG [Suspect]
     Indication: OFF LABEL USE
  3. KEPPRA [Concomitant]
     Indication: CONVULSION
  4. DIGOXIN [Concomitant]
     Indication: HEART RATE
  5. PRADAXA [Concomitant]
     Indication: CEREBROVASCULAR ACCIDENT
  6. LIPITOR [Concomitant]
  7. METOPROLOL [Concomitant]
     Indication: BLOOD PRESSURE

REACTIONS (1)
  - Incorrect drug administration duration [Unknown]
